FAERS Safety Report 8078395-X (Version None)
Quarter: 2012Q1

REPORT INFORMATION
  Report Type: 
  Country: None (occurrence: None)
  Receive Date: 20120127
  Receipt Date: 20110228
  Transmission Date: 20120608
  Serious: No
  Sender: FDA-Public Use
  Company Number: US-ABBOTT-10P-163-0677600-00

PATIENT
  Sex: Female
  Weight: 53.572 kg

DRUGS (4)
  1. HUMIRA [Suspect]
     Dosage: 4 IN 1 DAY; STARTER KIT
     Dates: start: 20110214, end: 20110214
  2. HUMIRA [Suspect]
     Dates: start: 20110228, end: 20110228
  3. HUMIRA [Suspect]
     Indication: CROHN'S DISEASE
     Dates: start: 20090301, end: 20100301
  4. HUMIRA [Suspect]
     Indication: CROHN'S DISEASE
     Route: 058
     Dates: start: 20100101, end: 20100101

REACTIONS (7)
  - WOUND [None]
  - DIARRHOEA [None]
  - OEDEMA PERIPHERAL [None]
  - FEELING HOT [None]
  - NODULE [None]
  - CONTUSION [None]
  - ERYTHEMA [None]
